FAERS Safety Report 18275459 (Version 1)
Quarter: 2020Q3

REPORT INFORMATION
  Report Type: Other
  Country: US (occurrence: US)
  Receive Date: 20200916
  Receipt Date: 20200916
  Transmission Date: 20201103
  Serious: Yes (Hospitalization)
  Sender: FDA-Public Use
  Company Number: US-LEADIANT BIOSCIENCES INC-2020STPI000277

PATIENT
  Age: 24 Year
  Sex: Female

DRUGS (5)
  1. NEUPOGEN [Concomitant]
     Active Substance: FILGRASTIM
  2. MATULANE [Suspect]
     Active Substance: PROCARBAZINE HYDROCHLORIDE
     Indication: HODGKIN^S DISEASE
     Dosage: 50 MG, 3 CAPSULES QD FIRST 7 DAYS OF CHEMO CYCLE
     Route: 048
     Dates: start: 20200528
  3. TYLENOL [Concomitant]
     Active Substance: ACETAMINOPHEN
  4. CLOTRIMAZOLE AND BETAMETHASONE [Concomitant]
     Active Substance: BETAMETHASONE\CLOTRIMAZOLE
  5. PEPCID [ALUMINIUM HYDROXIDE GEL, DRIED;MAGNESIUM CARBONATE] [Concomitant]
     Active Substance: ALUMINUM HYDROXIDE\MAGNESIUM CARBONATE

REACTIONS (1)
  - Pyrexia [Unknown]

NARRATIVE: CASE EVENT DATE: 20200620
